FAERS Safety Report 9209497 (Version 1)
Quarter: 2013Q1

REPORT INFORMATION
  Report Type: Spontaneous
  Country: US (occurrence: None)
  Receive Date: 20120820
  Receipt Date: 20120820
  Transmission Date: 20140127
  Serious: No
  Sender: FDA-Public Use
  Company Number: 1000031403

PATIENT
  Age: 64 Year
  Sex: Male

DRUGS (7)
  1. VIIBRYD [Suspect]
     Indication: DEPRESSION
     Route: 048
     Dates: start: 201205, end: 201205
  2. WELLBUTRIN (BUPROPION)(BUPROPION) [Concomitant]
  3. LISINOPRIL (LISINOPRIL) (LISINOPRIL) [Concomitant]
  4. SIMVASTATIN (SIMVASTATIN) (SIMVASTATIN) [Concomitant]
  5. FENOFIBRATE  (FENOFIBRATE) (FENOFIBRATE) [Concomitant]
  6. GLYBURIDE (GLIBENCLAMIDE) (GLIBENCLAMIDE) [Concomitant]
  7. ACTOSE (PIOGLITAZONE) (PIOGLITAZONE) [Concomitant]

REACTIONS (1)
  - Libido decreased [None]
